FAERS Safety Report 6270316-5 (Version None)
Quarter: 2009Q3

REPORT INFORMATION
  Report Type: 
  Country: None (occurrence: None)
  Receive Date: 20090716
  Receipt Date: 20090707
  Transmission Date: 20100115
  Serious: Yes (Hospitalization)
  Sender: FDA-Public Use
  Company Number: A0788562A

PATIENT
  Age: 58 Year
  Sex: Male

DRUGS (3)
  1. AVANDAMET [Suspect]
     Route: 065
     Dates: start: 20040801, end: 20041201
  2. ROSIGLITAZONE MALEATE [Suspect]
     Dosage: 8MG PER DAY
     Route: 048
     Dates: start: 20050101, end: 20071201
  3. AVANDIA [Suspect]
     Dosage: 4MG PER DAY
     Route: 065
     Dates: start: 20060601, end: 20060901

REACTIONS (1)
  - MYOCARDIAL ISCHAEMIA [None]
